FAERS Safety Report 6713574-2 (Version None)
Quarter: 2010Q2

REPORT INFORMATION
  Report Type: 
  Country: None (occurrence: None)
  Receive Date: 20100506
  Receipt Date: 20100429
  Transmission Date: 20101027
  Serious: No
  Sender: FDA-Public Use
  Company Number: BE-ASTRAZENECA-2010SE08236

PATIENT
  Age: 445 Month
  Sex: Male

DRUGS (38)
  1. SEROQUEL [Suspect]
     Indication: INSOMNIA
     Route: 048
     Dates: start: 20030401
  2. SEROQUEL [Suspect]
     Route: 048
     Dates: start: 20030501
  3. SEROQUEL [Suspect]
     Route: 048
     Dates: start: 20030501
  4. SEROQUEL [Suspect]
     Route: 048
     Dates: start: 20051001
  5. SEROQUEL [Suspect]
     Route: 048
     Dates: start: 20080601
  6. SEROQUEL [Suspect]
     Route: 048
     Dates: start: 20091101
  7. SUSTANON [Concomitant]
     Indication: KLINEFELTER'S SYNDROME
     Dosage: 250 MG/ML
     Route: 030
     Dates: start: 20020501
  8. GABAPENTIN [Concomitant]
     Dosage: 100 UNTIL 300 MG
     Dates: start: 20080101
  9. SANDOZ [Concomitant]
     Dosage: 200X300 MG
     Route: 048
  10. MARCUMAR [Concomitant]
     Dosage: 0.5-0.5-0.5-0.75;  25*3 MG
     Dates: start: 20071001
  11. ZYRTEC [Concomitant]
     Dosage: WHEN NEEDED
     Route: 048
  12. ALDACTAZINE [Concomitant]
     Route: 048
  13. MAALOX FORTE [Concomitant]
     Route: 048
  14. LOPERAMIDE [Concomitant]
  15. AMOCLANE [Concomitant]
  16. IBUPROFENE [Concomitant]
     Dosage: 100X400 MG
  17. SIPRALEXA [Concomitant]
     Dates: start: 20030101
  18. SIPRALEXA [Concomitant]
     Dates: start: 20040101, end: 20070101
  19. SIPRALEXA [Concomitant]
     Dates: start: 20070101
  20. DOMINAL [Concomitant]
     Dates: start: 20010101
  21. DOMINAL [Concomitant]
     Dates: start: 20030101
  22. CIPRAMIL [Concomitant]
     Dates: start: 20010101, end: 20030101
  23. DIPIPERON [Concomitant]
     Dates: start: 20010101, end: 20030101
  24. TESTOVIRON IM [Concomitant]
     Dates: start: 20010101, end: 20020101
  25. INDERAL [Concomitant]
     Indication: HYPERTENSION
     Route: 048
  26. ENDRONAX [Concomitant]
     Dates: start: 20070101
  27. XANAX [Concomitant]
     Dates: start: 20070901
  28. LORAZEPAM [Concomitant]
     Dosage: 2-3/DAY
     Dates: start: 20071101
  29. JANUVIA [Concomitant]
     Dates: start: 20080101
  30. JANUVIA [Concomitant]
     Dates: start: 20090101
  31. EMCONCOR [Concomitant]
     Dates: start: 20080101
  32. RIVOTRIL [Concomitant]
     Dates: start: 20080601, end: 20080701
  33. GLUCOPHAGE [Concomitant]
     Dates: start: 20080801
  34. GLUCOPHAGE [Concomitant]
     Dates: start: 20080901, end: 20080901
  35. UNI DIAMICRON [Concomitant]
     Dates: start: 20090201
  36. LYRICA [Concomitant]
     Dates: start: 20090901, end: 20091201
  37. LIPITOR [Concomitant]
     Dates: start: 20091201
  38. DOCLORMETA [Concomitant]
     Dates: start: 20100101

REACTIONS (8)
  - DRY MOUTH [None]
  - FATIGUE [None]
  - METABOLIC DISORDER [None]
  - METABOLIC SYNDROME [None]
  - PALPITATIONS [None]
  - SOMNOLENCE [None]
  - TYPE 2 DIABETES MELLITUS [None]
  - WEIGHT INCREASED [None]
